FAERS Safety Report 7507074-X (Version None)
Quarter: 2011Q2

REPORT INFORMATION
  Report Type: 
  Country: None (occurrence: None)
  Receive Date: 20110526
  Receipt Date: 20110520
  Transmission Date: 20111010
  Serious: Yes (Death, Life-Threatening, Hospitalization)
  Sender: FDA-Public Use
  Company Number: US-ACTELION-A-US2011-49089

PATIENT

DRUGS (18)
  1. PROGRAF [Concomitant]
  2. ERGOCALCIFEROL [Concomitant]
  3. ZITHROMAX [Concomitant]
  4. METOLAZONE [Concomitant]
  5. FLOMAX [Concomitant]
  6. OXYGEN [Concomitant]
  7. XANAX [Concomitant]
  8. CELLCEPT [Concomitant]
  9. EPOPROSTENOL SODIUM [Suspect]
     Indication: PULMONARY ARTERIAL HYPERTENSION
     Dosage: 44 NG/KG, PER MIN
     Route: 042
     Dates: start: 20101108, end: 20110517
  10. BACTRIM [Concomitant]
  11. PANTOPRAZOLE [Concomitant]
  12. MULTI-VITAMIN [Concomitant]
  13. CORTICOSTEROIDS [Concomitant]
  14. PRAVACHOL [Concomitant]
  15. ALLOPURINOL [Concomitant]
  16. BUMETANIDE [Concomitant]
  17. PROCHLORPERAZINE TAB [Concomitant]
  18. LIDODERM [Concomitant]

REACTIONS (8)
  - ASPIRATION PLEURAL CAVITY [None]
  - DYSPNOEA EXERTIONAL [None]
  - PLEURAL EFFUSION [None]
  - IMPLANTABLE PLEURAL CATHETER INSERTION [None]
  - OXYGEN CONSUMPTION INCREASED [None]
  - BLOOD CREATININE INCREASED [None]
  - CONDITION AGGRAVATED [None]
  - RENAL FAILURE ACUTE [None]
